FAERS Safety Report 19648385 (Version 1)
Quarter: 2021Q3

REPORT INFORMATION
  Report Type: Report from Study
  Country: US (occurrence: US)
  Receive Date: 20210802
  Receipt Date: 20210802
  Transmission Date: 20211014
  Serious: No
  Sender: FDA-Public Use
  Company Number: US-ETON PHARMACEUTICALS, INC-2021ETO000100

PATIENT

DRUGS (3)
  1. ALKINDI SPRINKLE [Suspect]
     Active Substance: HYDROCORTISONE
     Dosage: 0.5 MG (MORNING),0.25 MG AND 0.25 MG (OTHER TWO DOSING), QD
     Route: 048
     Dates: start: 20210717
  2. ALKINDI SPRINKLE [Suspect]
     Active Substance: HYDROCORTISONE
     Indication: ADRENOGENITAL SYNDROME
     Dosage: 1 MG, 0.5 MG, AND 0.5 MG PER DAY
     Route: 048
     Dates: start: 20210419, end: 20210625
  3. ALKINDI SPRINKLE [Suspect]
     Active Substance: HYDROCORTISONE
     Dosage: 0.25 MG, TID
     Route: 048
     Dates: start: 20210625, end: 20210717

REACTIONS (1)
  - Product preparation issue [Unknown]

NARRATIVE: CASE EVENT DATE: 20210717
